FAERS Safety Report 19485782 (Version 1)
Quarter: 2021Q3

REPORT INFORMATION
  Report Type: Spontaneous
  Country: IE (occurrence: IE)
  Receive Date: 20210702
  Receipt Date: 20210702
  Transmission Date: 20211014
  Serious: Yes (Other)
  Sender: FDA-Public Use
  Company Number: IE-GLAXOSMITHKLINE-IE2021EME139098

PATIENT
  Age: 68 Year
  Sex: Female

DRUGS (1)
  1. INCRUSE ELLIPTA [Suspect]
     Active Substance: UMECLIDINIUM BROMIDE
     Indication: CHRONIC OBSTRUCTIVE PULMONARY DISEASE
     Dosage: UNK
     Dates: start: 20200601, end: 20210331

REACTIONS (5)
  - Fatigue [Recovering/Resolving]
  - Myalgia [Unknown]
  - Hypothyroidism [Unknown]
  - Condition aggravated [Unknown]
  - Pain [Recovering/Resolving]
